FAERS Safety Report 8240419-4 (Version None)
Quarter: 2012Q1

REPORT INFORMATION
  Report Type: 
  Country: None (occurrence: None)
  Receive Date: 20120328
  Receipt Date: 20120316
  Transmission Date: 20120608
  Serious: Yes (Other)
  Sender: FDA-Public Use
  Company Number: GB-ROCHE-1050146

PATIENT
  Sex: Female
  Weight: 55.2 kg

DRUGS (5)
  1. AVASTIN [Suspect]
     Indication: BREAST CANCER
     Dosage: CYCLE 4:10/FEB/2012
  2. CYCLOPHOSPHAMIDE [Suspect]
     Indication: BREAST CANCER
     Dosage: CYCLE 4:10/FEB/2012
  3. FLUOROURACIL [Suspect]
     Indication: BREAST CANCER
     Dosage: CYCLE 4:10/FEB/2012
  4. DOCETAXEL [Suspect]
     Indication: BREAST CANCER
     Dosage: CYCLE 3-20/JAN/2012
  5. EPIRUBICIN HYDROCHLORIDE [Suspect]
     Indication: BREAST CANCER
     Dosage: CYCLE 4:10/FEB/2012

REACTIONS (1)
  - PERICARDIAL EFFUSION [None]
